FAERS Safety Report 9228246 (Version 2)
Quarter: 2013Q2

REPORT INFORMATION
  Report Type: Spontaneous
  Country: NO (occurrence: NO)
  Receive Date: 20130412
  Receipt Date: 20130523
  Transmission Date: 20140414
  Serious: No
  Sender: FDA-Public Use
  Company Number: NO-ROCHE-1209455

PATIENT
  Sex: Female

DRUGS (5)
  1. ACTILYSE [Suspect]
     Indication: INTRACARDIAC THROMBUS
     Route: 065
  2. UNFRACTIONATED HEPARIN [Suspect]
     Indication: INTRACARDIAC THROMBUS
     Route: 065
  3. WARFARIN [Suspect]
     Indication: INTRACARDIAC THROMBUS
     Route: 048
  4. FRAGMIN [Suspect]
     Indication: INTRACARDIAC THROMBUS
     Route: 065
  5. CARBAMAZEPINE [Suspect]
     Indication: EPILEPSY
     Route: 065

REACTIONS (1)
  - Pregnancy [Unknown]
